FAERS Safety Report 10650655 (Version 2)
Quarter: 2015Q1

REPORT INFORMATION
  Report Type: Spontaneous
  Country: IT (occurrence: IT)
  Receive Date: 20141214
  Receipt Date: 20150115
  Transmission Date: 20150720
  Serious: Yes (Hospitalization)
  Sender: FDA-Public Use
  Company Number: IT-ROCHE-1506936

PATIENT
  Age: 64 Year
  Sex: Female

DRUGS (6)
  1. DIBASE [Concomitant]
     Active Substance: CHOLECALCIFEROL
     Route: 065
  2. FOSAVANCE [Concomitant]
     Active Substance: ALENDRONATE SODIUM\CHOLECALCIFEROL
  3. ACETYLSALICYLIC ACID [Concomitant]
     Active Substance: ASPIRIN
  4. ARAVA [Concomitant]
     Active Substance: LEFLUNOMIDE
  5. CRESTOR [Concomitant]
     Active Substance: ROSUVASTATIN CALCIUM
  6. TOCILIZUMAB [Suspect]
     Active Substance: TOCILIZUMAB
     Indication: RHEUMATOID ARTHRITIS
     Route: 042
     Dates: start: 20120202, end: 20141030

REACTIONS (3)
  - Abdominal pain upper [Recovered/Resolved]
  - Pleurisy [Recovered/Resolved]
  - Cystitis [Recovered/Resolved with Sequelae]

NARRATIVE: CASE EVENT DATE: 20140908
